FAERS Safety Report 4591009-6 (Version None)
Quarter: 2005Q1

REPORT INFORMATION
  Report Type: 
  Country: None (occurrence: None)
  Receive Date: 20050223
  Receipt Date: 20050223
  Transmission Date: 20050727
  Serious: Yes (Other)
  Sender: FDA-Public Use
  Company Number: None

PATIENT
  Sex: Male
  Weight: 97 kg

DRUGS (4)
  1. ARSENIC TRIOXIDE [Suspect]
  2. CYTARABINE [Concomitant]
  3. DAUNORUBICIN HCL [Concomitant]
  4. TRETINOIN [Concomitant]

REACTIONS (18)
  - CARDIAC MURMUR [None]
  - CARDIOMEGALY [None]
  - COUGH [None]
  - EFFUSION [None]
  - EYE HAEMORRHAGE [None]
  - FUNGAL INFECTION [None]
  - HAEMORRHAGE INTRACRANIAL [None]
  - HYPOTENSION [None]
  - HYPOXIA [None]
  - LUNG INFILTRATION [None]
  - PYREXIA [None]
  - RASH [None]
  - RENAL FAILURE ACUTE [None]
  - RETINOIC ACID SYNDROME [None]
  - SCROTAL DISORDER [None]
  - SEPSIS [None]
  - VISUAL DISTURBANCE [None]
  - WHITE BLOOD CELL COUNT INCREASED [None]
